FAERS Safety Report 26141298 (Version 1)
Quarter: 2025Q4

REPORT INFORMATION
  Report Type: Spontaneous
  Country: US (occurrence: US)
  Receive Date: 20251210
  Receipt Date: 20251210
  Transmission Date: 20260118
  Serious: No
  Sender: GUERBET
  Company Number: US-GUERBET / LLC-US-20250159

PATIENT
  Age: 65 Year
  Sex: Female
  Weight: 57 kg

DRUGS (1)
  1. ELUCIREM [Suspect]
     Active Substance: GADOPICLENOL
     Indication: Magnetic resonance imaging head
     Route: 042
     Dates: start: 20250919, end: 20250919

REACTIONS (2)
  - Urticaria [Recovered/Resolved]
  - Rash [Unknown]

NARRATIVE: CASE EVENT DATE: 20250919
